FAERS Safety Report 16080993 (Version 1)
Quarter: 2019Q1

REPORT INFORMATION
  Report Type: Spontaneous
  Country: US (occurrence: US)
  Receive Date: 20190316
  Receipt Date: 20190316
  Transmission Date: 20190418
  Serious: No
  Sender: FDA-Public Use
  Company Number: PHEH2019US011087

PATIENT
  Sex: Female

DRUGS (19)
  1. LETROZOLE. [Suspect]
     Active Substance: LETROZOLE
     Indication: OESTROGEN THERAPY
     Dosage: 2.5 MG, QD
     Route: 048
     Dates: start: 201705
  2. HYDRALAZINE [Concomitant]
     Active Substance: HYDRALAZINE HYDROCHLORIDE
     Indication: BLOOD PRESSURE MEASUREMENT
     Dosage: 25 MG, BID
     Route: 048
  3. METFORMIN HCL [Concomitant]
     Active Substance: METFORMIN HYDROCHLORIDE
     Indication: DIABETES MELLITUS
     Dosage: 1000 MG, QD
     Route: 048
  4. ZOMETA [Suspect]
     Active Substance: ZOLEDRONIC ACID
     Indication: BONE CANCER
     Dosage: UNK UNK, QMO
     Route: 065
     Dates: start: 201705
  5. DILTIAZEM. [Concomitant]
     Active Substance: DILTIAZEM
     Indication: ATRIAL FIBRILLATION
     Dosage: 120 MG, QD
     Route: 048
     Dates: start: 201602
  6. VITAMIN D3 [Concomitant]
     Active Substance: CHOLECALCIFEROL
     Indication: VITAMIN D DEFICIENCY
     Dosage: 1000 IU, QD
     Route: 048
  7. GLIPIZIDE. [Concomitant]
     Active Substance: GLIPIZIDE
     Indication: TYPE 2 DIABETES MELLITUS
     Dosage: 5 MG, QD
     Route: 048
  8. GARLIC. [Concomitant]
     Active Substance: GARLIC
     Indication: MUSCLE SPASMS
     Dosage: 1000 MG, QD
     Route: 048
  9. HYDROCHLOROTHIAZIDE. [Concomitant]
     Active Substance: HYDROCHLOROTHIAZIDE
     Indication: HYPERTENSION
     Dosage: 25 MG, QD
     Route: 048
  10. JANTOVEN [Concomitant]
     Active Substance: WARFARIN SODIUM
     Indication: ATRIAL FIBRILLATION
     Dosage: 5 MG, (1.5 TABLET (7.5) ON MON, WED, FRID AND SAT
     Route: 048
     Dates: start: 201602
  11. GLUCOSAMINA+CONDROITINA [Concomitant]
     Indication: ARTHROPATHY
     Dosage: 900 MG, QD (500MG GLUCOSAMINE AND 400 CHONDROITIN)
     Route: 065
  12. LOSARTAN. [Concomitant]
     Active Substance: LOSARTAN
     Indication: BLOOD PRESSURE MEASUREMENT
     Dosage: 100 MG, QD
     Route: 048
     Dates: start: 2016
  13. JANTOVEN [Concomitant]
     Active Substance: WARFARIN SODIUM
     Dosage: 100 MG, QD
     Route: 048
     Dates: start: 201603
  14. VITAMINE C [Concomitant]
     Active Substance: ASCORBIC ACID
     Indication: VITAMIN C DECREASED
     Dosage: 500 MG, QD
     Route: 048
  15. MULTIVITAMIN [Concomitant]
     Active Substance: VITAMINS
     Indication: PRODUCT USED FOR UNKNOWN INDICATION
     Dosage: 1 DF, QD
     Route: 048
  16. VITAMIN B12 [Concomitant]
     Active Substance: CYANOCOBALAMIN
     Indication: VITAMIN B1 DECREASED
     Dosage: 100 UG, QD
     Route: 048
  17. FISH OIL [Concomitant]
     Active Substance: FISH OIL
     Indication: CARDIAC DISORDER
     Dosage: 1000 DF, QD
     Route: 048
  18. IBRANCE [Suspect]
     Active Substance: PALBOCICLIB
     Indication: BREAST CANCER
     Dosage: 125 MG, QD (FOR 21 DAYS)
     Route: 048
  19. VITAMINE C [Concomitant]
     Active Substance: ASCORBIC ACID
     Indication: IMMUNE SYSTEM DISORDER

REACTIONS (4)
  - Dyspnoea [Not Recovered/Not Resolved]
  - Pain in extremity [Unknown]
  - Lung disorder [Not Recovered/Not Resolved]
  - Paraesthesia [Recovering/Resolving]

NARRATIVE: CASE EVENT DATE: 201711
